FAERS Safety Report 15541052 (Version 2)
Quarter: 2018Q4

REPORT INFORMATION
  Report Type: Spontaneous
  Country: JP (occurrence: JP)
  Receive Date: 20181023
  Receipt Date: 20181031
  Transmission Date: 20190205
  Serious: Yes (Hospitalization, Other)
  Sender: FDA-Public Use
  Company Number: PHJP2018JP017909

PATIENT
  Age: 68 Year
  Sex: Female

DRUGS (1)
  1. LETROZOLE. [Suspect]
     Active Substance: LETROZOLE
     Indication: BREAST CANCER
     Dosage: UNK
     Route: 048

REACTIONS (9)
  - Back pain [Unknown]
  - Cardiac failure congestive [Unknown]
  - Dyspnoea [Unknown]
  - Atrial fibrillation [Unknown]
  - Atrial thrombosis [Recovered/Resolved]
  - Cold sweat [Unknown]
  - Abdominal pain [Unknown]
  - Cerebral infarction [Unknown]
  - Renal infarct [Unknown]
